FAERS Safety Report 4375984-0 (Version None)
Quarter: 2004Q2

REPORT INFORMATION
  Report Type: 
  Country: None (occurrence: None)
  Receive Date: 20040607
  Receipt Date: 20040531
  Transmission Date: 20050107
  Serious: Yes (Hospitalization)
  Sender: FDA-Public Use
  Company Number: 2004-04-0473

PATIENT
  Age: 30 Year
  Sex: Male
  Weight: 55 kg

DRUGS (5)
  1. REBETOL [Suspect]
     Indication: HEPATITIS C
     Dosage: 800 MG QD ORAL
     Route: 048
     Dates: start: 20020121, end: 20020603
  2. INTRON A [Suspect]
     Indication: HEPATITIS C
     Dosage: 6 MU TIW
     Dates: start: 20020121, end: 20020524
  3. METHIMAZOLE [Concomitant]
  4. METHIMAZOLE [Concomitant]
  5. METHIMAZOLE [Concomitant]

REACTIONS (9)
  - ASTHENIA [None]
  - BASEDOW'S DISEASE [None]
  - BODY TEMPERATURE DECREASED [None]
  - DISEASE RECURRENCE [None]
  - EXOPHTHALMOS [None]
  - HYPERINSULINAEMIA [None]
  - HYPOGLYCAEMIA [None]
  - HYPOKALAEMIA [None]
  - QUADRIPLEGIA [None]
